FAERS Safety Report 23456572 (Version 1)
Quarter: 2024Q1

REPORT INFORMATION
  Report Type: Report from Study
  Country: US (occurrence: US)
  Receive Date: 20240130
  Receipt Date: 20240130
  Transmission Date: 20240410
  Serious: Yes (Death, Other)
  Sender: FDA-Public Use
  Company Number: US-MYLANLABS-202101844741

PATIENT
  Age: 79 Year
  Sex: Male
  Weight: 77 kg

DRUGS (9)
  1. LIPITOR [Interacting]
     Active Substance: ATORVASTATIN CALCIUM
     Indication: Myocardial infarction
     Dosage: 80 MG, 1X/DAY
     Route: 065
     Dates: start: 20210302
  2. XTANDI [Suspect]
     Active Substance: ENZALUTAMIDE
     Indication: Prostate cancer
     Dosage: 160 MILLIGRAM
     Route: 065
     Dates: start: 20231013
  3. XTANDI [Interacting]
     Active Substance: ENZALUTAMIDE
     Indication: Prostate cancer
     Dosage: 160 MG, 1X/DAY
     Route: 048
     Dates: start: 20210101, end: 20210227
  4. XTANDI [Interacting]
     Active Substance: ENZALUTAMIDE
     Indication: Hypercholesterolaemia
     Dosage: 4 DF, DAILY
     Route: 065
     Dates: start: 20211122
  5. XTANDI [Interacting]
     Active Substance: ENZALUTAMIDE
     Indication: Prostatic specific antigen increased
  6. LOVASTATIN [Concomitant]
     Active Substance: LOVASTATIN
     Indication: Product used for unknown indication
     Dosage: 10 MG
     Route: 065
  7. IBUPROFEN [Concomitant]
     Active Substance: IBUPROFEN
     Indication: Product used for unknown indication
     Dosage: UNK
     Route: 065
  8. LUPRON [Concomitant]
     Active Substance: LEUPROLIDE ACETATE
     Indication: Product used for unknown indication
     Dosage: UNK
     Route: 065
  9. ALLOPURINOL [Concomitant]
     Active Substance: ALLOPURINOL
     Indication: Product used for unknown indication
     Dosage: UNK
     Route: 065

REACTIONS (3)
  - Death [Fatal]
  - Drug interaction [Recovered/Resolved]
  - Enzyme level increased [Unknown]

NARRATIVE: CASE EVENT DATE: 20231101
